FAERS Safety Report 26114965 (Version 1)
Quarter: 2025Q4

REPORT INFORMATION
  Report Type: 
  Country: AU (occurrence: AU)
  Receive Date: 20251203
  Receipt Date: 20251203
  Transmission Date: 20260118
  Serious: Yes (Other)
  Sender: CELLTRION
  Company Number: AU-CELLTRION INC.-2025AU043186

PATIENT

DRUGS (2)
  1. INFLIXIMAB [Suspect]
     Active Substance: INFLIXIMAB
     Indication: Product used for unknown indication
  2. METHYLPREDNISOLONE [Suspect]
     Active Substance: METHYLPREDNISOLONE
     Indication: Product used for unknown indication

REACTIONS (9)
  - Placental chorioangioma [Unknown]
  - Condition aggravated [Unknown]
  - Inflammation [Unknown]
  - Intestinal mass [Unknown]
  - Pseudopolyp [Unknown]
  - Constipation [Unknown]
  - Postoperative wound infection [Unknown]
  - Maternal exposure during pregnancy [Unknown]
  - Therapy partial responder [Unknown]
